FAERS Safety Report 7176925-3 (Version None)
Quarter: 2010Q4

REPORT INFORMATION
  Report Type: 
  Country: None (occurrence: None)
  Receive Date: 20101215
  Receipt Date: 20101215
  Transmission Date: 20110411
  Serious: Yes (Other)
  Sender: FDA-Public Use
  Company Number: None

PATIENT
  Age: 25 Year
  Sex: Female
  Weight: 65.318 kg

DRUGS (1)
  1. OCELLA 0.03MG-3MG BARR LABRORATIRIES [Suspect]
     Indication: POLYCYSTIC OVARIES
     Dosage: ONCE PER DAY PO
     Route: 048
     Dates: start: 20101205, end: 20101214

REACTIONS (2)
  - CONSTIPATION [None]
  - GASTROINTESTINAL DISORDER [None]
